FAERS Safety Report 23789419 (Version 6)
Quarter: 2025Q1

REPORT INFORMATION
  Report Type: Spontaneous
  Country: US (occurrence: US)
  Receive Date: 20240426
  Receipt Date: 20250115
  Transmission Date: 20250409
  Serious: Yes (Other)
  Sender: PFIZER
  Company Number: US-PFIZER INC-PV202400053869

PATIENT
  Age: 60 Year
  Sex: Female
  Weight: 53.061 kg

DRUGS (4)
  1. IBRANCE [Suspect]
     Active Substance: PALBOCICLIB
     Indication: Breast cancer metastatic
     Route: 048
  2. LETROZOLE [Concomitant]
     Active Substance: LETROZOLE
     Indication: Breast cancer metastatic
  3. EFFEXOR [Concomitant]
     Active Substance: VENLAFAXINE HYDROCHLORIDE
     Dosage: 25 MG TABLET, 1 TABLET WITH FOOD ORALLY DAILY
     Route: 048
  4. EFFEXOR [Concomitant]
     Active Substance: VENLAFAXINE HYDROCHLORIDE
     Dosage: 100 MG TABLET, 1 TABLET WITH FOOD ORALLY ONCE A DAY
     Route: 048

REACTIONS (5)
  - Leukopenia [Unknown]
  - Neoplasm progression [Unknown]
  - Off label use [Unknown]
  - Arthralgia [Recovering/Resolving]
  - Weight increased [Unknown]
